FAERS Safety Report 7237623-0 (Version None)
Quarter: 2011Q1

REPORT INFORMATION
  Report Type: 
  Country: None (occurrence: None)
  Receive Date: 20110121
  Receipt Date: 20110111
  Transmission Date: 20110831
  Serious: Yes (Hospitalization, Other)
  Sender: FDA-Public Use
  Company Number: US-NAPPMUNDI-USA-2010-0058913

PATIENT
  Sex: Male

DRUGS (3)
  1. OXYCODONE HCL [Concomitant]
     Indication: BREAKTHROUGH PAIN
     Dosage: 180 MG, DAILY
     Route: 048
     Dates: start: 20040101
  2. OXYCONTIN [Suspect]
     Indication: PAIN
     Dosage: 60 MG, Q8H
     Route: 048
  3. OXYCONTIN [Suspect]
     Dosage: 40 MG, HS
     Route: 048

REACTIONS (9)
  - URTICARIA [None]
  - DRUG WITHDRAWAL SYNDROME [None]
  - DYSPNOEA [None]
  - MALAISE [None]
  - BLOOD PRESSURE INCREASED [None]
  - FLUSHING [None]
  - DRUG HYPERSENSITIVITY [None]
  - HEART RATE INCREASED [None]
  - SWELLING [None]
